FAERS Safety Report 20264009 (Version 1)
Quarter: 2021Q4

REPORT INFORMATION
  Report Type: Spontaneous
  Country: US (occurrence: None)
  Receive Date: 20211230
  Receipt Date: 20211230
  Transmission Date: 20220303
  Serious: Yes (Death)
  Sender: FDA-Public Use
  Company Number: None

PATIENT
  Age: 70 Year
  Sex: Female
  Weight: 67.5 kg

DRUGS (4)
  1. AZACITIDINE [Suspect]
     Active Substance: AZACITIDINE
     Indication: Product used for unknown indication
     Dosage: OTHER FREQUENCY : ONCE DAILY FOR 7D;?
     Route: 058
     Dates: start: 20210722, end: 20211230
  2. ACYCLOVIR [Concomitant]
     Active Substance: ACYCLOVIR
     Dates: start: 20210720, end: 20211230
  3. FENOFIBRATE [Concomitant]
     Active Substance: FENOFIBRATE
     Dates: start: 20210720, end: 20211230
  4. METFORMIN [Concomitant]
     Active Substance: METFORMIN HYDROCHLORIDE
     Dates: start: 20210720, end: 20211230

REACTIONS (1)
  - Disease progression [None]

NARRATIVE: CASE EVENT DATE: 20211230
